FAERS Safety Report 8536430-6 (Version None)
Quarter: 2012Q3

REPORT INFORMATION
  Report Type: 
  Country: None (occurrence: None)
  Receive Date: 20120725
  Receipt Date: 20120717
  Transmission Date: 20120928
  Serious: Yes (Other)
  Sender: FDA-Public Use
  Company Number: DE-ROCHE-1071086

PATIENT
  Sex: Male
  Weight: 62 kg

DRUGS (3)
  1. BENDAMUSTINE HYDROCHLORIDE [Concomitant]
     Dosage: TWICE
     Route: 042
     Dates: start: 20120109, end: 20120207
  2. MABTHERA [Suspect]
     Indication: NON-HODGKIN'S LYMPHOMA
     Route: 042
     Dates: start: 20120109, end: 20120207
  3. MABTHERA [Suspect]
     Route: 042

REACTIONS (2)
  - HEPATITIS [None]
  - LIVER FUNCTION TEST ABNORMAL [None]
